FAERS Safety Report 8004113-7 (Version None)
Quarter: 2011Q4

REPORT INFORMATION
  Report Type: 
  Country: None (occurrence: None)
  Receive Date: 20111222
  Receipt Date: 20111214
  Transmission Date: 20120403
  Serious: Yes (Hospitalization)
  Sender: FDA-Public Use
  Company Number: US-ASTRAZENECA-2011SE75870

PATIENT
  Age: 57 Year
  Sex: Female
  Weight: 59 kg

DRUGS (7)
  1. STEROIDS [Concomitant]
  2. PREVACID [Concomitant]
  3. NEXIUM [Suspect]
     Indication: GASTROOESOPHAGEAL REFLUX DISEASE
     Route: 048
  4. CYMBALTA [Concomitant]
  5. SEROQUEL [Suspect]
     Indication: BIPOLAR I DISORDER
     Route: 048
  6. SYNTHROID [Concomitant]
     Indication: THYROID DISORDER
  7. ANTIBIOTICS [Concomitant]

REACTIONS (12)
  - FALL [None]
  - SKULL FRACTURE [None]
  - AMNESIA [None]
  - TRAUMATIC HAEMATOMA [None]
  - PARANOID PERSONALITY DISORDER [None]
  - ORAL INFECTION [None]
  - OFF LABEL USE [None]
  - DRUG DOSE OMISSION [None]
  - SELF INJURIOUS BEHAVIOUR [None]
  - TOOTH FRACTURE [None]
  - NIGHTMARE [None]
  - HAEMORRHAGE INTRACRANIAL [None]
